FAERS Safety Report 6512535-6 (Version None)
Quarter: 2009Q4

REPORT INFORMATION
  Report Type: 
  Country: None (occurrence: None)
  Receive Date: 20091222
  Receipt Date: 20091215
  Transmission Date: 20100525
  Serious: Yes (Death, Hospitalization)
  Sender: FDA-Public Use
  Company Number: US-MERCK-0912USA00745

PATIENT
  Age: 65 Year
  Sex: Male

DRUGS (5)
  1. INVANZ [Suspect]
     Indication: CLOSTRIDIAL INFECTION
     Dosage: FOR THREE DAYS
     Route: 042
     Dates: start: 20090930, end: 20091002
  2. INSULIN [Concomitant]
     Route: 065
  3. ALLOPURINOL [Concomitant]
     Route: 065
  4. BENICAR [Concomitant]
     Route: 065
  5. CRESTOR [Concomitant]
     Route: 065

REACTIONS (5)
  - COLITIS [None]
  - DEEP VEIN THROMBOSIS [None]
  - MALAISE [None]
  - MYOCARDIAL INFARCTION [None]
  - PULMONARY EMBOLISM [None]
